FAERS Safety Report 16542224 (Version 4)
Quarter: 2019Q3

REPORT INFORMATION
  Report Type: Spontaneous
  Country: US (occurrence: US)
  Receive Date: 20190708
  Receipt Date: 20190906
  Transmission Date: 20191004
  Serious: Yes (Other)
  Sender: FDA-Public Use
  Company Number: US-AMGEN-USASP2019108096

PATIENT
  Age: 52 Year
  Sex: Female
  Weight: 61.68 kg

DRUGS (2)
  1. REUSABLE AUTOINJECTOR [Suspect]
     Active Substance: DEVICE
     Indication: PSORIASIS
     Dosage: 50 MILLIGRAM
     Route: 065
     Dates: start: 20190520
  2. ENBREL [Suspect]
     Active Substance: ETANERCEPT
     Dosage: 50 MILLIGRAM, EVERY 5 DAYS
     Route: 065
     Dates: start: 20190619, end: 20190624

REACTIONS (10)
  - Cellulitis [Recovered/Resolved]
  - Drug hypersensitivity [Unknown]
  - Off label use [Unknown]
  - Injection site haematoma [Unknown]
  - Arthralgia [Unknown]
  - Incorrect dose administered [Unknown]
  - Malaise [Unknown]
  - Pain [Unknown]
  - Fatigue [Unknown]
  - Injection site pain [Unknown]

NARRATIVE: CASE EVENT DATE: 201906
